FAERS Safety Report 20009520 (Version 3)
Quarter: 2022Q1

REPORT INFORMATION
  Report Type: Spontaneous
  Country: CH (occurrence: CH)
  Receive Date: 20211028
  Receipt Date: 20220111
  Transmission Date: 20220423
  Serious: Yes (Death, Hospitalization, Other)
  Sender: FDA-Public Use
  Company Number: CH-GILEAD-2021-0554319

PATIENT
  Age: 60 Year
  Sex: Male
  Weight: 107 kg

DRUGS (37)
  1. YESCARTA [Suspect]
     Active Substance: AXICABTAGENE CILOLEUCEL
     Indication: Diffuse large B-cell lymphoma
     Dosage: UNK
     Route: 042
     Dates: start: 20210816, end: 20210816
  2. LEVETIRACETAM [Concomitant]
     Active Substance: LEVETIRACETAM
  3. PANTOPRAZOLE [Concomitant]
     Active Substance: PANTOPRAZOLE
  4. ATORVASTATIN [Concomitant]
     Active Substance: ATORVASTATIN
  5. LEVEMIR [Concomitant]
     Active Substance: INSULIN DETEMIR
  6. NOVORAPID [Concomitant]
     Active Substance: INSULIN ASPART
  7. BACTRIM [Concomitant]
     Active Substance: SULFAMETHOXAZOLE\TRIMETHOPRIM
  8. VALTREX [Concomitant]
     Active Substance: VALACYCLOVIR HYDROCHLORIDE
  9. HYDROCORTISON GALEN [Concomitant]
  10. BUTYLSCOPOLAMINE BROMIDE [Concomitant]
     Active Substance: BUTYLSCOPOLAMINE BROMIDE
  11. FRAGMIN [Concomitant]
     Active Substance: DALTEPARIN SODIUM
  12. RYZODEG 70/30 [Concomitant]
     Active Substance: INSULIN ASPART\INSULIN DEGLUDEC
  13. HUMALOG [Concomitant]
     Active Substance: INSULIN LISPRO
  14. SODIUM CHLORIDE [Concomitant]
     Active Substance: SODIUM CHLORIDE
  15. ACETAMINOPHEN [Concomitant]
     Active Substance: ACETAMINOPHEN
  16. PRIVIGEN [Concomitant]
     Active Substance: HUMAN IMMUNOGLOBULIN G
  17. ZOLEDRONIC ACID [Concomitant]
     Active Substance: ZOLEDRONIC ACID
  18. CEFEPIME [Concomitant]
     Active Substance: CEFEPIME HYDROCHLORIDE
  19. AMLODIPINE BESYLATE [Concomitant]
     Active Substance: AMLODIPINE BESYLATE
  20. ELIQUIS [Concomitant]
     Active Substance: APIXABAN
  21. DAPAGLIFLOZIN [Concomitant]
     Active Substance: DAPAGLIFLOZIN
  22. POTASSIUM CITRATE [Concomitant]
     Active Substance: POTASSIUM CITRATE
  23. POLYETHYLENE GLYCOLS [Concomitant]
     Active Substance: POLYETHYLENE GLYCOLS
  24. MAGNESIUM ASPARTATE [Concomitant]
     Active Substance: MAGNESIUM ASPARTATE
  25. PANTOPRAZOLE SODIUM [Concomitant]
     Active Substance: PANTOPRAZOLE SODIUM
  26. AMITRIPTYLINE [Concomitant]
     Active Substance: AMITRIPTYLINE
  27. SIMVASTATIN [Concomitant]
     Active Substance: SIMVASTATIN
  28. SUPRADYN [MINERALS NOS;VITAMINS NOS] [Concomitant]
  29. VITAMIN D3 [Concomitant]
     Active Substance: CHOLECALCIFEROL
  30. ZESTRIL [Concomitant]
     Active Substance: LISINOPRIL
  31. ALLOPURINOL [Concomitant]
     Active Substance: ALLOPURINOL
  32. PREGABALIN [Concomitant]
     Active Substance: PREGABALIN
  33. SODIUM CHLORIDE [Concomitant]
     Active Substance: SODIUM CHLORIDE
  34. PIPERACILLIN AND TAZOBACTAM [Concomitant]
     Active Substance: PIPERACILLIN SODIUM\TAZOBACTAM SODIUM
  35. FENTANYL [Concomitant]
     Active Substance: FENTANYL
  36. ALTEPLASE [Concomitant]
     Active Substance: ALTEPLASE
  37. ALBUTEROL SULFATE\IPRATROPIUM BROMIDE [Concomitant]
     Active Substance: ALBUTEROL SULFATE\IPRATROPIUM BROMIDE

REACTIONS (2)
  - Respiratory syncytial virus infection [Fatal]
  - Diffuse large B-cell lymphoma [Fatal]

NARRATIVE: CASE EVENT DATE: 20211014
